FAERS Safety Report 7101148-3 (Version None)
Quarter: 2010Q4

REPORT INFORMATION
  Report Type: 
  Country: None (occurrence: None)
  Receive Date: 20101105
  Receipt Date: 20101018
  Transmission Date: 20110411
  Serious: Yes (Hospitalization, Other)
  Sender: FDA-Public Use
  Company Number: AUR-APL-2010-02166

PATIENT
  Age: 58 Year
  Sex: Female
  Weight: 113.38 kg

DRUGS (7)
  1. RISPERIDONE [Suspect]
     Indication: ANXIETY
     Dates: end: 20100701
  2. RISPERIDONE [Suspect]
     Indication: PARANOIA
     Dates: end: 20100701
  3. GEODON [Suspect]
     Indication: ANXIETY
     Dosage: 40MG - BID - ORAL
     Route: 048
     Dates: start: 20100701, end: 20100820
  4. GEODON [Suspect]
     Indication: PARANOIA
     Dosage: 40MG - BID - ORAL
     Route: 048
     Dates: start: 20100701, end: 20100820
  5. INVEGA [Suspect]
     Indication: ANXIETY
     Dosage: ORAL
     Dates: end: 20100701
  6. INVEGA [Suspect]
     Indication: PARANOIA
     Dosage: ORAL
     Dates: end: 20100701
  7. CELEXA [Concomitant]

REACTIONS (7)
  - ABDOMINAL DISCOMFORT [None]
  - ASTHENIA [None]
  - CONVERSION DISORDER [None]
  - HYPERHIDROSIS [None]
  - TREATMENT NONCOMPLIANCE [None]
  - TREMOR [None]
  - WEIGHT INCREASED [None]
